FAERS Safety Report 23751163 (Version 1)
Quarter: 2024Q2

REPORT INFORMATION
  Report Type: Other
  Country: US (occurrence: None)
  Receive Date: 20240417
  Receipt Date: 20240417
  Transmission Date: 20240716
  Serious: Yes (Death)
  Sender: FDA-Public Use
  Company Number: US-ROCHE-3544570

PATIENT
  Age: 59 Year
  Sex: Male

DRUGS (5)
  1. POLIVY [Suspect]
     Active Substance: POLATUZUMAB VEDOTIN-PIIQ
     Indication: Diffuse large B-cell lymphoma
     Dosage: INFUSE 1.8MG/KG (118.26MG PER DOSE) INTRAVENOUSLY EVERY 3 WEEK(S)?VIAL
     Route: 042
     Dates: start: 20230710, end: 20230710
  2. POLIVY [Suspect]
     Active Substance: POLATUZUMAB VEDOTIN-PIIQ
     Indication: Malignant lymphoid neoplasm
  3. RITUXAN [Suspect]
     Active Substance: RITUXIMAB
     Indication: Diffuse large B-cell lymphoma
     Dosage: DATE OF SERVICE REPORTED ON 18/DEC/2023.
     Route: 065
     Dates: start: 20221121, end: 20231218
  4. RITUXAN [Suspect]
     Active Substance: RITUXIMAB
     Indication: Malignant lymphoid neoplasm
  5. ALLOPURINOL [Concomitant]
     Active Substance: ALLOPURINOL

REACTIONS (1)
  - Death [Fatal]

NARRATIVE: CASE EVENT DATE: 20240313
